FAERS Safety Report 7875464-1 (Version None)
Quarter: 2011Q4

REPORT INFORMATION
  Report Type: 
  Country: None (occurrence: None)
  Receive Date: 20111031
  Receipt Date: 20111023
  Transmission Date: 20120403
  Serious: Yes (Death, Other)
  Sender: FDA-Public Use
  Company Number: PHHY2011US93661

PATIENT
  Age: 64 Year
  Sex: Female

DRUGS (1)
  1. DEFERASIROX [Suspect]
     Indication: ZYGOMYCOSIS

REACTIONS (3)
  - ZYGOMYCOSIS [None]
  - GENERAL PHYSICAL HEALTH DETERIORATION [None]
  - DISEASE PROGRESSION [None]
